FAERS Safety Report 5787318-5 (Version None)
Quarter: 2008Q2

REPORT INFORMATION
  Report Type: 
  Country: None (occurrence: None)
  Receive Date: 20080625
  Receipt Date: 20070910
  Transmission Date: 20081010
  Serious: No
  Sender: FDA-Public Use
  Company Number: US-ASTRAZENECA-2007UW21313

PATIENT
  Age: 19 Year
  Sex: Male
  Weight: 62.6 kg

DRUGS (4)
  1. PULMICORT [Suspect]
     Indication: ASTHMA
     Dosage: 1-2 PUFFS BID
     Route: 055
  2. SINGULAIR [Concomitant]
  3. PROVENTIL [Concomitant]
  4. PREDNISONE [Concomitant]

REACTIONS (1)
  - SINUS DISORDER [None]
